FAERS Safety Report 10259639 (Version 2)
Quarter: 2014Q2

REPORT INFORMATION
  Report Type: Report from Study
  Country: US (occurrence: US)
  Receive Date: 20140625
  Receipt Date: 20140625
  Transmission Date: 20141212
  Serious: Yes (Life-Threatening, Hospitalization, Disabling)
  Sender: FDA-Public Use
  Company Number: US-ASTRAZENECA-2013SE78104

PATIENT
  Age: 71 Year
  Sex: Male
  Weight: 77.1 kg

DRUGS (8)
  1. SYMBICORT [Suspect]
     Indication: CHRONIC OBSTRUCTIVE PULMONARY DISEASE
     Dosage: 160/4.5 MCG 2 PUFF BID
     Route: 055
  2. SYMBICORT [Suspect]
     Indication: EMPHYSEMA
     Dosage: 160/4.5 MCG 2 PUFF BID
     Route: 055
  3. SYMBICORT [Suspect]
     Indication: CHRONIC OBSTRUCTIVE PULMONARY DISEASE
     Dosage: 160/4.5 MCG 1 PUFF BID
     Route: 055
     Dates: start: 2011
  4. SYMBICORT [Suspect]
     Indication: EMPHYSEMA
     Dosage: 160/4.5 MCG 1 PUFF BID
     Route: 055
     Dates: start: 2011
  5. UNSPECIFIED CHEMOTHERAPY DRUGS [Suspect]
     Route: 065
  6. VICODAN [Concomitant]
     Indication: PAIN
     Dosage: ONE HALF TAB PRN Q8H
     Route: 048
  7. NORCO [Concomitant]
     Indication: BACK PAIN
     Dosage: 10-325MG BID
     Dates: start: 2012
  8. BENAZEPRIL [Concomitant]
     Indication: BLOOD PRESSURE ABNORMAL
     Dates: start: 201307

REACTIONS (14)
  - Dyspnoea [Unknown]
  - Non-Hodgkin^s lymphoma [Unknown]
  - Haemorrhage [Unknown]
  - Body height decreased [Unknown]
  - Fatigue [Unknown]
  - Oxygen saturation decreased [Unknown]
  - Spinal disorder [Unknown]
  - Abdominal pain upper [Unknown]
  - Nausea [Unknown]
  - Off label use [Unknown]
  - Intentional product misuse [Unknown]
  - Medication error [Unknown]
  - Drug dose omission [Unknown]
  - Drug prescribing error [Unknown]
